FAERS Safety Report 7885415-1 (Version None)
Quarter: 2011Q4

REPORT INFORMATION
  Report Type: 
  Country: None (occurrence: None)
  Receive Date: 20111102
  Receipt Date: 20111023
  Transmission Date: 20120403
  Serious: Yes (Hospitalization, Other)
  Sender: FDA-Public Use
  Company Number: PL-ELI_LILLY_AND_COMPANY-10-11-00101

PATIENT
  Sex: Female
  Weight: 62 kg

DRUGS (5)
  1. CYCLONAMINE [Concomitant]
     Indication: PRODUCT USED FOR UNKNOWN INDICATION
     Dosage: (2 DOSAGE FORMS,2 IN 1 D
     Route: 042
     Dates: start: 20100519
  2. AMOXICILLIN [Concomitant]
     Indication: PYREXIA
     Dosage: 1.2 G, 3/D
     Route: 042
     Dates: start: 20100514
  3. RANIGAST [Concomitant]
     Indication: PROPHYLAXIS
     Dosage: (1 DOSAGE FORMS, 2 IN 1 D)
     Route: 042
     Dates: start: 20100519
  4. GEMCITABINE HYDROCHLORIDE [Suspect]
     Indication: NON-SMALL CELL LUNG CANCER
     Dosage: 1875 MG 2 IN 3 WK
     Route: 042
     Dates: start: 20100507
  5. CISPLATIN [Suspect]
     Indication: NON-SMALL CELL LUNG CANCER
     Dosage: 113 MG,1 IN 3 WK
     Route: 042
     Dates: start: 20100507

REACTIONS (2)
  - PANCYTOPENIA [None]
  - PYREXIA [None]
